FAERS Safety Report 5577716-7 (Version None)
Quarter: 2007Q4

REPORT INFORMATION
  Report Type: 
  Country: None (occurrence: None)
  Receive Date: 20071130
  Receipt Date: 20070622
  Transmission Date: 20080405
  Serious: No
  Sender: FDA-Public Use
  Company Number: US200707000198

PATIENT
  Age: 76 Year
  Sex: Female
  Weight: 79.4 kg

DRUGS (6)
  1. BYETTA [Suspect]
     Indication: TYPE 2 DIABETES MELLITUS
     Dosage: 5 UG, 2/D, SUBCUTANEOUS
     Route: 058
     Dates: start: 20050101
  2. TAMOXIFEN CITRATE [Concomitant]
  3. LIPITOR [Concomitant]
  4. SIMVASTATIN [Concomitant]
  5. ZOCOR [Concomitant]
  6. METFORMIN HCL [Concomitant]

REACTIONS (11)
  - ANOREXIA [None]
  - ANXIETY [None]
  - ASTHENIA [None]
  - BLOOD GLUCOSE FLUCTUATION [None]
  - COUGH [None]
  - INCREASED UPPER AIRWAY SECRETION [None]
  - LACRIMATION INCREASED [None]
  - MALAISE [None]
  - THINKING ABNORMAL [None]
  - THROAT IRRITATION [None]
  - WEIGHT FLUCTUATION [None]
